FAERS Safety Report 7391306-5 (Version None)
Quarter: 2011Q2

REPORT INFORMATION
  Report Type: 
  Country: None (occurrence: None)
  Receive Date: 20110404
  Receipt Date: 20110324
  Transmission Date: 20111010
  Serious: Yes (Other)
  Sender: FDA-Public Use
  Company Number: BD-JNJFOC-20110311012

PATIENT
  Age: 26 Year
  Sex: Female

DRUGS (24)
  1. VINCRISTINE [Suspect]
     Dosage: CYCLE 1
     Route: 065
  2. VINCRISTINE [Suspect]
     Dosage: CYCLE 4
     Route: 065
  3. PREDNISOLONE [Suspect]
     Dosage: CYCLE 1
     Route: 065
  4. DOXORUBICIN HCL [Suspect]
     Dosage: CYCLE 6
     Route: 042
  5. VINCRISTINE [Suspect]
     Indication: NON-HODGKIN'S LYMPHOMA STAGE IV
     Dosage: CYCLE 6
     Route: 065
  6. VINCRISTINE [Suspect]
     Dosage: CYCLE 5
     Route: 065
  7. PREDNISOLONE [Suspect]
     Indication: NON-HODGKIN'S LYMPHOMA STAGE IV
     Dosage: CYCLE 2
     Route: 065
  8. DOXORUBICIN HCL [Suspect]
     Dosage: CYCLE 5
     Route: 042
  9. CYCLOPHOSPHAMIDE [Suspect]
     Indication: NON-HODGKIN'S LYMPHOMA STAGE IV
     Dosage: CYCLE 2
     Route: 065
  10. CYCLOPHOSPHAMIDE [Suspect]
     Dosage: CYCLE 4
     Route: 065
  11. CYCLOPHOSPHAMIDE [Suspect]
     Dosage: CYCLE 5
     Route: 065
  12. CYCLOPHOSPHAMIDE [Suspect]
     Dosage: CYCLE 6
     Route: 065
  13. VINCRISTINE [Suspect]
     Dosage: CYCLE 3
     Route: 065
  14. VINCRISTINE [Suspect]
     Dosage: CYCLE 2
     Route: 065
  15. PREDNISOLONE [Suspect]
     Dosage: CYCLE 5
     Route: 065
  16. PREDNISOLONE [Suspect]
     Dosage: CYCLE 4
     Route: 065
  17. DOXORUBICIN HCL [Suspect]
     Dosage: CYCLE 3
     Route: 042
  18. CYCLOPHOSPHAMIDE [Suspect]
     Dosage: CYCLE 3
     Route: 065
  19. PREDNISOLONE [Suspect]
     Dosage: CYCLE 3
     Route: 065
  20. CYCLOPHOSPHAMIDE [Suspect]
     Dosage: CYCLE 1
     Route: 065
  21. PREDNISOLONE [Suspect]
     Dosage: CYCLE 6
     Route: 065
  22. DOXORUBICIN HCL [Suspect]
     Indication: NON-HODGKIN'S LYMPHOMA STAGE IV
     Dosage: CYCLE 2
     Route: 042
  23. DOXORUBICIN HCL [Suspect]
     Dosage: CYCLE 1
     Route: 042
  24. DOXORUBICIN HCL [Suspect]
     Dosage: CYCLE 4
     Route: 042

REACTIONS (6)
  - COUGH [None]
  - ALANINE AMINOTRANSFERASE INCREASED [None]
  - CHEST PAIN [None]
  - HAEMOGLOBIN DECREASED [None]
  - DRUG EXPOSURE DURING PREGNANCY [None]
  - PLATELET COUNT DECREASED [None]
